FAERS Safety Report 6743444-5 (Version None)
Quarter: 2010Q2

REPORT INFORMATION
  Report Type: 
  Country: None (occurrence: None)
  Receive Date: 20100527
  Receipt Date: 20100517
  Transmission Date: 20101027
  Serious: Yes (Hospitalization)
  Sender: FDA-Public Use
  Company Number: FR-NOVOPROD-307197

PATIENT
  Age: 82 Year
  Sex: Female
  Weight: 61 kg

DRUGS (11)
  1. INSULATARD [Suspect]
     Indication: TYPE 2 DIABETES MELLITUS
     Dosage: 60 IU MORNING AND 8 IU EVENING, QD
     Route: 058
  2. NOVONORM [Suspect]
     Indication: TYPE 2 DIABETES MELLITUS
     Dosage: 1 MG, QD
     Route: 048
  3. STAGID [Suspect]
     Indication: TYPE 2 DIABETES MELLITUS
     Dosage: 700 MG, NOON, QD
     Route: 048
  4. DETENSIEL                          /00802602/ [Concomitant]
     Indication: HYPERTENSION
     Dosage: 10 MG MORNING, QD
     Route: 048
  5. UVEDOSE [Concomitant]
     Dosage: 100,000 IU, EVERY 15 DAYS
     Route: 048
  6. TAHOR [Concomitant]
     Dosage: 10 MG, QD
  7. PLAVIX [Concomitant]
     Dosage: FILM-COATED TABLET
  8. INEXIUM                            /01479302/ [Concomitant]
     Dosage: GASTRO-RESISTANT TAB
  9. DOLIPRANE [Concomitant]
     Dosage: 500 MG
     Route: 048
  10. TRIATEC                            /00885601/ [Concomitant]
     Dosage: 5 MG, QD
  11. SPECIAFOLDINE [Concomitant]
     Dosage: 5 MG, QD

REACTIONS (3)
  - HYPERHIDROSIS [None]
  - HYPOGLYCAEMIA [None]
  - LOCKED-IN SYNDROME [None]
